FAERS Safety Report 10075713 (Version 1)
Quarter: 2014Q2

REPORT INFORMATION
  Report Type: Spontaneous
  Country: US (occurrence: None)
  Receive Date: 20140411
  Receipt Date: 20140411
  Transmission Date: 20141212
  Serious: Yes (Other)
  Sender: FDA-Public Use
  Company Number: None

PATIENT
  Sex: Male

DRUGS (2)
  1. REQUIP [Suspect]
     Indication: PARKINSON^S DISEASE
  2. CARBIDOPA LEVODOPA [Suspect]
     Indication: PARKINSON^S DISEASE

REACTIONS (3)
  - Narcolepsy [None]
  - Drug effect delayed [None]
  - Food interaction [None]
